FAERS Safety Report 10331469 (Version 2)
Quarter: 2014Q3

REPORT INFORMATION
  Report Type: Spontaneous
  Country: US (occurrence: US)
  Receive Date: 20140722
  Receipt Date: 20140903
  Transmission Date: 20150326
  Serious: No
  Sender: FDA-Public Use
  Company Number: US-PFIZER INC-2014202743

PATIENT
  Age: 85 Year
  Sex: Female
  Weight: 78.01 kg

DRUGS (3)
  1. SYNTHROID [Concomitant]
     Active Substance: LEVOTHYROXINE SODIUM
     Dosage: 100 MG, DAILY
  2. VERAPAMIL [Concomitant]
     Active Substance: VERAPAMIL HYDROCHLORIDE
     Dosage: 120 MG, DAILY
  3. CELEBREX [Suspect]
     Active Substance: CELECOXIB
     Indication: BACK PAIN
     Dosage: 200 MG, DAILY
     Dates: start: 2014

REACTIONS (3)
  - Sinusitis [Unknown]
  - Mucosal haemorrhage [Unknown]
  - Erythema [Unknown]

NARRATIVE: CASE EVENT DATE: 201407
